FAERS Safety Report 12761539 (Version 1)
Quarter: 2016Q3

REPORT INFORMATION
  Report Type: Spontaneous
  Country: US (occurrence: US)
  Receive Date: 20160920
  Receipt Date: 20160920
  Transmission Date: 20161109
  Serious: No
  Sender: FDA-Public Use
  Company Number: US-ELI_LILLY_AND_COMPANY-US201609005081

PATIENT
  Sex: Male

DRUGS (10)
  1. CARBIDOPA LEVODOPA [Concomitant]
     Active Substance: CARBIDOPA\LEVODOPA
     Dosage: UNK, UNKNOWN
     Route: 065
  2. DUTASTERIDE. [Concomitant]
     Active Substance: DUTASTERIDE
     Dosage: UNK, UNKNOWN
     Route: 065
  3. DULAGLUTIDE. [Suspect]
     Active Substance: DULAGLUTIDE
     Indication: TYPE 2 DIABETES MELLITUS
     Dosage: 0.75 MG, WEEKLY (1/W)
     Route: 065
     Dates: start: 2016
  4. ENTACAPONE. [Concomitant]
     Active Substance: ENTACAPONE
     Dosage: UNK, UNKNOWN
     Route: 065
  5. CALCITROL                          /00514701/ [Concomitant]
     Dosage: UNK, UNKNOWN
     Route: 065
  6. CLOPIDOGREL [Concomitant]
     Active Substance: CLOPIDOGREL BISULFATE
     Dosage: UNK, UNKNOWN
     Route: 065
  7. RIVASTIGMINE. [Concomitant]
     Active Substance: RIVASTIGMINE
     Dosage: UNK, UNKNOWN
     Route: 065
  8. NIFEDIPIN [Concomitant]
     Active Substance: NIFEDIPINE
     Dosage: UNK, UNKNOWN
     Route: 065
  9. BABY ASPIRIN [Concomitant]
     Active Substance: ASPIRIN
     Dosage: UNK, UNKNOWN
     Route: 065
  10. FERROUS SULFATE. [Concomitant]
     Active Substance: FERROUS SULFATE
     Dosage: UNK, UNKNOWN
     Route: 065

REACTIONS (1)
  - Amnesia [Unknown]
